FAERS Safety Report 7243182-9 (Version None)
Quarter: 2011Q1

REPORT INFORMATION
  Report Type: 
  Country: None (occurrence: None)
  Receive Date: 20110125
  Receipt Date: 20110118
  Transmission Date: 20110831
  Serious: Yes (Other)
  Sender: FDA-Public Use
  Company Number: BR-PFIZER INC-2011011580

PATIENT
  Age: 74 Year
  Sex: Female
  Weight: 56 kg

DRUGS (4)
  1. OSCAL 500-D [Concomitant]
     Indication: OSTEOPOROSIS
     Dosage: UNK
  2. LOSARTAN POTASSIUM AND HYDROCHLOROTHIAZIDE [Concomitant]
     Indication: HYPERTENSION
     Dosage: UNK
  3. CELEBRA [Suspect]
     Indication: ARTHRALGIA
     Dosage: 200 MG, 3X/DAY
     Route: 048
     Dates: start: 20101201, end: 20110116
  4. AMLODIPINE BESILATE [Concomitant]
     Indication: HYPERTENSION
     Dosage: UNK

REACTIONS (6)
  - VISION BLURRED [None]
  - SYNCOPE [None]
  - FEELING ABNORMAL [None]
  - PAPULE [None]
  - HYPERSENSITIVITY [None]
  - PRURITUS GENERALISED [None]
